FAERS Safety Report 7815472-X (Version None)
Quarter: 2011Q4

REPORT INFORMATION
  Report Type: 
  Country: None (occurrence: None)
  Receive Date: 20111014
  Receipt Date: 20111011
  Transmission Date: 20120403
  Serious: Yes (Other)
  Sender: FDA-Public Use
  Company Number: PHEH2011US05597

PATIENT
  Sex: Female
  Weight: 41.633 kg

DRUGS (6)
  1. NEURONTIN [Concomitant]
     Dosage: 480 MG, UNK
     Route: 058
  2. COUMADIN [Concomitant]
     Dosage: 4 MG, DAILY
     Route: 048
  3. METHOTREXATE [Concomitant]
     Dosage: 17.5 MG, UNK
  4. EXJADE [Suspect]
     Indication: IRON OVERLOAD
     Dosage: 500 MG, QD
     Route: 048
     Dates: start: 20100224
  5. ZOLOFT [Concomitant]
     Indication: DEPRESSION
     Dosage: 100 MG, DAILY
     Route: 048
  6. NORETHINDRONE [Concomitant]
     Dosage: 0.35 MG, DAILY
     Route: 048

REACTIONS (1)
  - BRONCHITIS [None]
